FAERS Safety Report 15659129 (Version 1)
Quarter: 2018Q4

REPORT INFORMATION
  Report Type: Spontaneous
  Country: IT (occurrence: IT)
  Receive Date: 20181127
  Receipt Date: 20181127
  Transmission Date: 20190205
  Serious: Yes (Hospitalization)
  Sender: FDA-Public Use
  Company Number: IT-SA-2018SA320862

PATIENT
  Age: 90 Year
  Sex: Male

DRUGS (5)
  1. SOLOSA [Concomitant]
     Active Substance: GLIMEPIRIDE
     Indication: DIABETES MELLITUS
     Route: 048
     Dates: start: 20060202
  2. LASIX [Concomitant]
     Active Substance: FUROSEMIDE
     Indication: CARDIAC FAILURE
     Dosage: 25 MG, QCY
     Route: 048
     Dates: start: 20060202
  3. ENOXAPARIN SODIUM. [Suspect]
     Active Substance: ENOXAPARIN SODIUM
     Indication: THROMBOSIS PROPHYLAXIS
     Dosage: 4000 KIU, QD
     Route: 058
     Dates: start: 20181107
  4. TRIATEC [RAMIPRIL] [Concomitant]
     Indication: HYPOTENSION
     Dosage: 10 MG, QD
     Route: 048
     Dates: start: 20060202
  5. ACETYLSALICYLIC ACID [Suspect]
     Active Substance: ASPIRIN
     Dosage: 100 MG, QD
     Route: 048
     Dates: start: 20060202

REACTIONS (4)
  - Rectal haemorrhage [Unknown]
  - Anaemia [Unknown]
  - Drug interaction [Unknown]
  - Hypotension [Unknown]

NARRATIVE: CASE EVENT DATE: 20181110
